FAERS Safety Report 23352929 (Version 1)
Quarter: 2023Q4

REPORT INFORMATION
  Report Type: Spontaneous
  Country: TW (occurrence: TW)
  Receive Date: 20231230
  Receipt Date: 20231230
  Transmission Date: 20240110
  Serious: Yes (Hospitalization)
  Sender: FDA-Public Use
  Company Number: TW-MACLEODS PHARMACEUTICALS US LTD-MAC2023045060

PATIENT

DRUGS (1)
  1. CLOPIDOGREL [Suspect]
     Active Substance: CLOPIDOGREL BISULFATE
     Indication: Product used for unknown indication
     Dosage: 75 MILLIGRAM, QD
     Route: 065
     Dates: start: 20020701, end: 20020817

REACTIONS (6)
  - Thrombocytopenia [Recovered/Resolved]
  - Haemothorax [Recovered/Resolved]
  - Liver disorder [Unknown]
  - Cholelithiasis [Unknown]
  - Haematuria [Recovered/Resolved]
  - Upper gastrointestinal haemorrhage [Unknown]
